FAERS Safety Report 21186946 (Version 2)
Quarter: 2022Q3

REPORT INFORMATION
  Report Type: Spontaneous
  Country: US (occurrence: US)
  Receive Date: 20220808
  Receipt Date: 20220816
  Transmission Date: 20221027
  Serious: No
  Sender: FDA-Public Use
  Company Number: US-BAYER-2022A103750

PATIENT
  Age: 44 Year
  Sex: Female

DRUGS (1)
  1. MIRENA [Suspect]
     Active Substance: LEVONORGESTREL
     Dosage: 20?G/DAY
     Route: 015
     Dates: start: 20200813, end: 20220720

REACTIONS (9)
  - Nausea [Recovering/Resolving]
  - Abdominal pain [Recovering/Resolving]
  - Breast tenderness [Recovering/Resolving]
  - Mood swings [Recovering/Resolving]
  - Fatigue [Recovering/Resolving]
  - Weight increased [Recovering/Resolving]
  - Abdominal distension [Recovered/Resolved]
  - Adnexa uteri pain [None]
  - Back pain [Recovered/Resolved]
